FAERS Safety Report 13088492 (Version 1)
Quarter: 2017Q1

REPORT INFORMATION
  Report Type: Report from Study
  Country: BR (occurrence: BR)
  Receive Date: 20170105
  Receipt Date: 20170105
  Transmission Date: 20170428
  Serious: Yes (Other)
  Sender: FDA-Public Use
  Company Number: PHHY2016BR181529

PATIENT
  Age: 80 Year
  Sex: Female

DRUGS (4)
  1. EXELON PATCH [Suspect]
     Active Substance: RIVASTIGMINE
     Indication: PRODUCT USED FOR UNKNOWN INDICATION
     Dosage: 4.6 MG, QD (PATCH 5 (CM2))
     Route: 062
     Dates: end: 20161011
  2. BROMAZEPAM SANDOZ [Suspect]
     Active Substance: BROMAZEPAM
     Indication: PRODUCT USED FOR UNKNOWN INDICATION
     Dosage: 3 MG,
     Route: 065
  3. VENLAFAXINE [Concomitant]
     Active Substance: VENLAFAXINE HYDROCHLORIDE
     Indication: PRODUCT USED FOR UNKNOWN INDICATION
     Dosage: 75 MG, UNK
     Route: 065
  4. PRESS PLUS [Concomitant]
     Indication: PRODUCT USED FOR UNKNOWN INDICATION
     Dosage: 1 DF, UNK
     Route: 065

REACTIONS (17)
  - Scratch [Unknown]
  - Sleep disorder [Unknown]
  - Feeding disorder [Unknown]
  - Movement disorder [Unknown]
  - Pruritus [Unknown]
  - Colitis ulcerative [Unknown]
  - Urinary tract infection [Unknown]
  - Eating disorder [Unknown]
  - Memory impairment [Unknown]
  - Speech disorder [Unknown]
  - Fatigue [Unknown]
  - Anxiety [Unknown]
  - Erysipelas [Not Recovered/Not Resolved]
  - Back injury [Unknown]
  - Communication disorder [Unknown]
  - Depression [Unknown]
  - Confusional state [Unknown]
